FAERS Safety Report 24052128 (Version 1)
Quarter: 2024Q3

REPORT INFORMATION
  Report Type: Spontaneous
  Country: AT (occurrence: AT)
  Receive Date: 20240704
  Receipt Date: 20240704
  Transmission Date: 20241017
  Serious: Yes (Death, Hospitalization, Other)
  Sender: PFIZER
  Company Number: AT-ABBVIE-5815720

PATIENT
  Age: 84 Year
  Sex: Male

DRUGS (10)
  1. FLUCONAZOLE [Suspect]
     Active Substance: FLUCONAZOLE
     Dosage: UNK
  2. LEVOFLOXACIN [Suspect]
     Active Substance: LEVOFLOXACIN
     Dosage: UNK
  3. VENETOCLAX [Suspect]
     Active Substance: VENETOCLAX
     Indication: Myeloproliferative neoplasm
     Dosage: START DATE-10 DAYS LATER
     Route: 048
     Dates: end: 202203
  4. VENETOCLAX [Suspect]
     Active Substance: VENETOCLAX
     Indication: Myelodysplastic syndrome
     Dosage: CYCLE I
     Route: 048
     Dates: start: 20220113, end: 202202
  5. VENETOCLAX [Suspect]
     Active Substance: VENETOCLAX
     Indication: Acute myeloid leukaemia
     Dosage: 100 MG
     Route: 048
     Dates: start: 202203
  6. ERYTHROPOIETIN [Concomitant]
     Active Substance: ERYTHROPOIETIN
     Dosage: UNK
  7. G CSFPCGEN [Concomitant]
     Dosage: UNK
  8. AZACITIDINE [Concomitant]
     Active Substance: AZACITIDINE
     Dosage: CYCLE I
     Dates: start: 20220113
  9. SULFAMETROLE\TRIMETHOPRIM [Concomitant]
     Active Substance: SULFAMETROLE\TRIMETHOPRIM
     Dosage: UNK
  10. AMOXICILLIN\CLAVULANIC ACID [Concomitant]
     Active Substance: AMOXICILLIN\CLAVULANIC ACID
     Dosage: UNK

REACTIONS (13)
  - Pneumonia [Fatal]
  - Epstein-Barr virus infection [Unknown]
  - Pancytopenia [Unknown]
  - C-reactive protein increased [Unknown]
  - Fall [Unknown]
  - Pupillary disorder [Unknown]
  - Lip injury [Unknown]
  - Tendon rupture [Unknown]
  - Atrial flutter [Recovered/Resolved]
  - Gait disturbance [Unknown]
  - Iron overload [Unknown]
  - COVID-19 [Unknown]
  - Therapeutic product effect incomplete [Unknown]

NARRATIVE: CASE EVENT DATE: 20220121
